FAERS Safety Report 9652463 (Version 2)
Quarter: 2013Q4

REPORT INFORMATION
  Report Type: Spontaneous
  Country: CN (occurrence: CN)
  Receive Date: 20131029
  Receipt Date: 20131029
  Transmission Date: 20140711
  Serious: Yes (Other)
  Sender: FDA-Public Use
  Company Number: CN-PFIZER INC-2013305411

PATIENT
  Age: 47 Year
  Sex: Male
  Weight: 60 kg

DRUGS (3)
  1. VFEND [Suspect]
     Indication: FUNGAL INFECTION
     Dosage: 0.3 G, 2X/DAY
     Route: 041
     Dates: start: 20131020, end: 20131020
  2. VFEND [Suspect]
     Dosage: 0.2 G, 2X/DAY
     Route: 041
     Dates: start: 20131021
  3. SULPERAZON [Concomitant]

REACTIONS (2)
  - Slow response to stimuli [Recovering/Resolving]
  - Derealisation [Recovering/Resolving]
